FAERS Safety Report 4383544-0 (Version None)
Quarter: 2004Q2

REPORT INFORMATION
  Report Type: 
  Country: None (occurrence: None)
  Receive Date: 20040623
  Receipt Date: 20040406
  Transmission Date: 20050107
  Serious: Yes (Other)
  Sender: FDA-Public Use
  Company Number: JP-BRISTOL-MYERS SQUIBB COMPANY-12555074

PATIENT
  Age: 43 Year
  Sex: Male

DRUGS (4)
  1. TAXOL [Suspect]
     Indication: NON-SMALL CELL LUNG CANCER
     Route: 042
     Dates: start: 20040317, end: 20040317
  2. PARAPLATIN [Suspect]
     Indication: NON-SMALL CELL LUNG CANCER
     Route: 042
     Dates: start: 20040317, end: 20040317
  3. DECADRON [Concomitant]
     Route: 042
     Dates: start: 20040317, end: 20040317
  4. NASEA [Concomitant]
     Route: 042
     Dates: start: 20040317, end: 20040317

REACTIONS (3)
  - DYSGEUSIA [None]
  - INTERMITTENT CLAUDICATION [None]
  - PNEUMOTHORAX [None]
